FAERS Safety Report 20596236 (Version 2)
Quarter: 2022Q1

REPORT INFORMATION
  Report Type: Spontaneous
  Country: US (occurrence: US)
  Receive Date: 20220315
  Receipt Date: 20220325
  Transmission Date: 20220423
  Serious: Yes (Hospitalization)
  Sender: FDA-Public Use
  Company Number: US-TORRENT-00011786

PATIENT
  Age: 22 Year
  Sex: Male

DRUGS (2)
  1. ARIPIPRAZOLE [Suspect]
     Active Substance: ARIPIPRAZOLE
     Indication: Product used for unknown indication
     Dosage: TITRATED TO 20 MG
  2. RISPERIDONE [Suspect]
     Active Substance: RISPERIDONE
     Indication: Schizophrenia
     Dosage: TITRATION TO 5 MG, OVER THE NEXT 4 DAYS
     Route: 065

REACTIONS (3)
  - Psychotic disorder [Recovering/Resolving]
  - Musculoskeletal stiffness [Unknown]
  - Agitation [Recovering/Resolving]
